FAERS Safety Report 8496518 (Version 5)
Quarter: 2013Q1

REPORT INFORMATION
  Report Type: Report from Study
  Country: US (occurrence: US)
  Receive Date: 20120405
  Receipt Date: 20130329
  Transmission Date: 20140127
  Serious: Yes (Hospitalization, Disabling)
  Sender: FDA-Public Use
  Company Number: US-ABBOTT-12P-163-0919662-00

PATIENT
  Sex: Male

DRUGS (7)
  1. HUMIRA [Suspect]
     Indication: PSORIASIS
     Route: 058
     Dates: start: 20110410
  2. HUMIRA [Suspect]
     Route: 058
     Dates: start: 20120401
  3. LORCET [Concomitant]
     Indication: BONE PAIN
     Dosage: 10/650 MG
     Dates: end: 20120911
  4. LORCET [Concomitant]
     Indication: OSTEONECROSIS
  5. ATIVAN [Concomitant]
     Indication: ANXIETY
     Dates: end: 20120911
  6. BUSPAR [Concomitant]
     Indication: ANXIETY
     Dates: end: 20120501
  7. LISINOPRIL [Concomitant]
     Indication: HYPERTENSION

REACTIONS (3)
  - Postoperative adhesion [Recovered/Resolved]
  - Osteonecrosis [Recovered/Resolved]
  - Humerus fracture [Recovered/Resolved]
